FAERS Safety Report 8298836-2 (Version None)
Quarter: 2012Q2

REPORT INFORMATION
  Report Type: 
  Country: None (occurrence: None)
  Receive Date: 20120419
  Receipt Date: 20120417
  Transmission Date: 20120825
  Serious: Yes (Life-Threatening, Hospitalization, Other)
  Sender: FDA-Public Use
  Company Number: GB-JNJFOC-20120104116

PATIENT
  Sex: Female

DRUGS (3)
  1. STELARA [Suspect]
     Route: 058
     Dates: start: 20120201
  2. STELARA [Suspect]
     Indication: PSORIASIS
     Route: 058
     Dates: start: 20110822
  3. STELARA [Suspect]
     Route: 058
     Dates: start: 20110617

REACTIONS (1)
  - SUBARACHNOID HAEMORRHAGE [None]
